FAERS Safety Report 21802793 (Version 1)
Quarter: 2022Q4

REPORT INFORMATION
  Report Type: Spontaneous
  Country: HU (occurrence: HU)
  Receive Date: 20221231
  Receipt Date: 20221231
  Transmission Date: 20230113
  Serious: Yes (Life-Threatening, Other)
  Sender: FDA-Public Use
  Company Number: HU-AMGEN-HUNSP2022223013

PATIENT
  Age: 65 Year
  Sex: Female

DRUGS (9)
  1. MVASI [Suspect]
     Active Substance: BEVACIZUMAB-AWWB
     Indication: Colon cancer
     Dosage: 390 MILLIGRAM DURING 30 MINUTES
     Route: 040
     Dates: start: 20221129
  2. MVASI [Suspect]
     Active Substance: BEVACIZUMAB-AWWB
     Indication: Metastases to peritoneum
  3. OXALIPLATIN [Suspect]
     Active Substance: OXALIPLATIN
     Indication: Metastases to peritoneum
     Dosage: 133 MILLIGRAM, Q4H
     Route: 040
     Dates: start: 20221129, end: 20221129
  4. OXALIPLATIN [Suspect]
     Active Substance: OXALIPLATIN
     Indication: Colon cancer
  5. VIDONORM [Concomitant]
     Indication: Hypertension
     Dosage: 1 DOSAGE FORM, Q12H
     Route: 048
  6. SPIRONOLACTONE [Concomitant]
     Active Substance: SPIRONOLACTONE
     Indication: Hypertension
     Dosage: 25 MILLIGRAM, QD
     Route: 048
  7. GLICLAZIDE [Concomitant]
     Active Substance: GLICLAZIDE
     Indication: Diabetes mellitus
     Dosage: 60 MILLIGRAM, QD
     Route: 048
  8. BISOPROLOL FUMARATE [Concomitant]
     Active Substance: BISOPROLOL FUMARATE
     Indication: Hypertension
     Dosage: 2.5 MILLIGRAM, QD
     Route: 048
  9. ENOXAPARIN SODIUM [Concomitant]
     Active Substance: ENOXAPARIN SODIUM
     Indication: Prophylaxis
     Dosage: 6000 INTERNATIONAL UNIT, QD
     Route: 058

REACTIONS (2)
  - Arteriospasm coronary [Recovered/Resolved]
  - Hypotension [Recovered/Resolved]

NARRATIVE: CASE EVENT DATE: 20221129
